FAERS Safety Report 24324487 (Version 2)
Quarter: 2024Q3

REPORT INFORMATION
  Report Type: Spontaneous
  Country: US (occurrence: US)
  Receive Date: 20240916
  Receipt Date: 20240924
  Transmission Date: 20241016
  Serious: Yes (Disabling)
  Sender: MEDEXUS PHARMA
  Company Number: US-MEDEXUS PHARMA, INC.-2024MED00395

PATIENT
  Sex: Female

DRUGS (3)
  1. RASUVO [Suspect]
     Active Substance: METHOTREXATE SODIUM
     Indication: Sarcoidosis
     Dosage: 25 MG, 1X/WEEK ON FRIDAYS
     Dates: start: 2016
  2. RASUVO [Suspect]
     Active Substance: METHOTREXATE SODIUM
     Dosage: UNK, LOWER DOSE
  3. RASUVO [Suspect]
     Active Substance: METHOTREXATE SODIUM
     Dosage: 25 MG, 1X/WEEK ON FRIDAYS

REACTIONS (3)
  - Sarcoidosis [Unknown]
  - Drug ineffective for unapproved indication [Not Recovered/Not Resolved]
  - Product dose omission issue [Unknown]

NARRATIVE: CASE EVENT DATE: 20160101
